FAERS Safety Report 9445074 (Version 1)
Quarter: 2013Q3

REPORT INFORMATION
  Report Type: Spontaneous
  Country: US (occurrence: US)
  Receive Date: 20130807
  Receipt Date: 20130807
  Transmission Date: 20140515
  Serious: Yes (Other)
  Sender: FDA-Public Use
  Company Number: US-UCBSA-093671

PATIENT
  Age: 0 None
  Sex: Male
  Weight: 3.1 kg

DRUGS (2)
  1. CIMZIA [Suspect]
     Indication: CROHN^S DISEASE
     Route: 064
     Dates: start: 20111013, end: 20120529
  2. ASACOL [Concomitant]
     Route: 064
     Dates: start: 20111013, end: 20120529

REACTIONS (2)
  - Premature baby [Unknown]
  - Foetal exposure during pregnancy [Recovered/Resolved]
